FAERS Safety Report 7753231-7 (Version None)
Quarter: 2011Q3

REPORT INFORMATION
  Report Type: 
  Country: None (occurrence: None)
  Receive Date: 20110913
  Receipt Date: 20110830
  Transmission Date: 20111222
  Serious: Yes (Other)
  Sender: FDA-Public Use
  Company Number: TPA2011A03640

PATIENT
  Age: 66 Year
  Sex: Male
  Weight: 133.8111 kg

DRUGS (1)
  1. ACTOPLUS MET [Suspect]
     Indication: BLOOD GLUCOSE INCREASED
     Dosage: 2 IN 1 D, PER ORAL
     Route: 048
     Dates: start: 20071001, end: 20110501

REACTIONS (1)
  - CYSTITIS ULCERATIVE [None]
